FAERS Safety Report 20773146 (Version 1)
Quarter: 2022Q2

REPORT INFORMATION
  Report Type: Spontaneous
  Country: US (occurrence: None)
  Receive Date: 20220429
  Receipt Date: 20220429
  Transmission Date: 20220720
  Serious: Yes (Death, Hospitalization)
  Sender: FDA-Public Use
  Company Number: None

PATIENT
  Age: 66 Year
  Sex: Female
  Weight: 47.8 kg

DRUGS (1)
  1. SOTROVIMAB [Suspect]
     Active Substance: SOTROVIMAB
     Indication: COVID-19
     Dosage: FREQUENCY : ONCE;?
     Route: 041
     Dates: end: 20220203

REACTIONS (4)
  - Acute myocardial infarction [None]
  - Pneumonia [None]
  - Acute respiratory distress syndrome [None]
  - COVID-19 pneumonia [None]

NARRATIVE: CASE EVENT DATE: 20220129
